FAERS Safety Report 12336284 (Version 1)
Quarter: 2016Q2

REPORT INFORMATION
  Report Type: Spontaneous
  Country: US (occurrence: None)
  Receive Date: 20160504
  Receipt Date: 20160504
  Transmission Date: 20160815
  Serious: Yes (Hospitalization)
  Sender: FDA-Public Use
  Company Number: None

PATIENT
  Age: 75 Year
  Sex: Female
  Weight: 42.72 kg

DRUGS (9)
  1. CALCITROL [Concomitant]
     Active Substance: CALCITRIOL
  2. RIBAVIRIN. [Suspect]
     Active Substance: RIBAVIRIN
     Indication: HEPATITIS C
     Route: 048
     Dates: start: 20151009, end: 20160311
  3. VIEKIRA PAK [Suspect]
     Active Substance: DASABUVIR\OMBITASVIR\PARITAPREVIR\RITONAVIR
     Indication: HEPATITIS C
     Dosage: 12.5/75/50/250MG BID PO
     Route: 048
     Dates: start: 20151009, end: 20160311
  4. AMLODIPINE [Concomitant]
     Active Substance: AMLODIPINE BESYLATE
  5. COREG [Concomitant]
     Active Substance: CARVEDILOL
  6. VITAMIN D2 [Concomitant]
     Active Substance: ERGOCALCIFEROL
  7. CALCIUM ACETATE. [Concomitant]
     Active Substance: CALCIUM ACETATE
  8. COZAAR [Concomitant]
     Active Substance: LOSARTAN POTASSIUM
  9. RITONAVIR. [Concomitant]
     Active Substance: RITONAVIR

REACTIONS (2)
  - Dizziness [None]
  - Hypotension [None]

NARRATIVE: CASE EVENT DATE: 20160311
